FAERS Safety Report 7409192-3 (Version None)
Quarter: 2011Q2

REPORT INFORMATION
  Report Type: 
  Country: None (occurrence: None)
  Receive Date: 20110412
  Receipt Date: 20110401
  Transmission Date: 20111010
  Serious: Yes (Other)
  Sender: FDA-Public Use
  Company Number: ES-GILEAD-2011-0037493

PATIENT
  Sex: Male
  Weight: 73 kg

DRUGS (2)
  1. VIREAD [Suspect]
     Indication: HEPATITIS B
     Dates: start: 20101227, end: 20110314
  2. BARACLUDE [Concomitant]
     Indication: HEPATITIS B
     Dates: start: 20090301

REACTIONS (3)
  - POLYURIA [None]
  - RENAL TUBULAR ACIDOSIS [None]
  - POLYDIPSIA [None]
